FAERS Safety Report 7086004-1 (Version None)
Quarter: 2010Q4

REPORT INFORMATION
  Report Type: 
  Country: None (occurrence: None)
  Receive Date: 20101004
  Receipt Date: 20100707
  Transmission Date: 20110411
  Serious: Yes (Hospitalization, Other)
  Sender: FDA-Public Use
  Company Number: 240546USA

PATIENT
  Age: 75 Year
  Sex: Female

DRUGS (9)
  1. CARBIDOPA AND LEVODOPA [Suspect]
     Indication: PARKINSON'S DISEASE
     Dosage: 25/100MG; 2 TABLETS (3/DAY)
     Dates: start: 20100401
  2. CIMETIDINE [Concomitant]
  3. OMEPRAZOLE [Concomitant]
  4. GLYBURIDE [Concomitant]
  5. SODIUM BICARBONATE [Concomitant]
  6. FEXOFENADINE HCL [Concomitant]
  7. METOPROLOL [Concomitant]
  8. ACETYLSALICYLIC ACID [Concomitant]
  9. GLYCERYL TRINITRATE [Concomitant]

REACTIONS (3)
  - PARKINSON'S DISEASE [None]
  - SWOLLEN TONGUE [None]
  - THROAT TIGHTNESS [None]
